FAERS Safety Report 6551039-1 (Version None)
Quarter: 2010Q1

REPORT INFORMATION
  Report Type: 
  Country: None (occurrence: None)
  Receive Date: 20100122
  Receipt Date: 20100122
  Transmission Date: 20100710
  Serious: Yes (Disabling, Other)
  Sender: FDA-Public Use
  Company Number: None

PATIENT
  Age: 2 Year
  Sex: Female
  Weight: 11.3399 kg

DRUGS (1)
  1. SINGULAIR [Suspect]
     Indication: ASTHMA
     Dosage: 1 PILL EVERY DAY PO
     Route: 048
     Dates: start: 20100115, end: 20100121

REACTIONS (6)
  - ANXIETY [None]
  - CRYING [None]
  - EMOTIONAL DISTRESS [None]
  - INSOMNIA [None]
  - MOOD SWINGS [None]
  - PRODUCT QUALITY ISSUE [None]
